FAERS Safety Report 23888113 (Version 1)
Quarter: 2024Q2

REPORT INFORMATION
  Report Type: Spontaneous
  Country: US (occurrence: US)
  Receive Date: 20240523
  Receipt Date: 20240523
  Transmission Date: 20240715
  Serious: No
  Sender: FDA-Public Use
  Company Number: US-AUROBINDO-AUR-APL-2023-079317

PATIENT
  Age: 46 Year
  Sex: Male
  Weight: 90 kg

DRUGS (1)
  1. LORATADINE [Suspect]
     Active Substance: LORATADINE
     Indication: Sinusitis
     Dosage: 1 DOSAGE FORM, DAILY
     Route: 065
     Dates: start: 20231212

REACTIONS (1)
  - Wrong technique in product usage process [Unknown]
